FAERS Safety Report 7141137-6 (Version None)
Quarter: 2010Q4

REPORT INFORMATION
  Report Type: 
  Country: None (occurrence: None)
  Receive Date: 20101202
  Receipt Date: 20101202
  Transmission Date: 20110411
  Serious: No
  Sender: FDA-Public Use
  Company Number: None

PATIENT
  Age: 64 Year
  Sex: Female
  Weight: 77.1115 kg

DRUGS (2)
  1. FLUTICASONE PROPIONATE [Suspect]
     Indication: NASAL CONGESTION
     Dosage: SPRAY NOSTRI L TWICE A DAY
     Dates: start: 20101026
  2. FLUTICASONE PROPIONATE [Suspect]
     Indication: NASOPHARYNGITIS
     Dosage: SPRAY NOSTRI L TWICE A DAY
     Dates: start: 20101026

REACTIONS (3)
  - APPLICATION SITE DRYNESS [None]
  - APPLICATION SITE ULCER [None]
  - RASH [None]
